FAERS Safety Report 18594511 (Version 1)
Quarter: 2020Q4

REPORT INFORMATION
  Report Type: Spontaneous
  Country: US (occurrence: US)
  Receive Date: 20201208
  Receipt Date: 20201208
  Transmission Date: 20210114
  Serious: No
  Sender: FDA-Public Use
  Company Number: None

PATIENT
  Age: 73 Year
  Sex: Female

DRUGS (1)
  1. DOXYCYCLINE HYCLATE. [Suspect]
     Active Substance: DOXYCYCLINE HYCLATE
     Indication: EAR INFECTION
     Dosage: ?          QUANTITY:1 CAPSULE(S);?
     Route: 048
     Dates: start: 20201205, end: 20201206

REACTIONS (5)
  - Drug hypersensitivity [None]
  - Product formulation issue [None]
  - Pruritus [None]
  - Erythema [None]
  - Headache [None]

NARRATIVE: CASE EVENT DATE: 20201205
